FAERS Safety Report 10135995 (Version 2)
Quarter: 2014Q2

REPORT INFORMATION
  Report Type: Spontaneous
  Country: US (occurrence: US)
  Receive Date: 20140429
  Receipt Date: 20140529
  Transmission Date: 20141212
  Serious: Yes (Hospitalization)
  Sender: FDA-Public Use
  Company Number: US-JNJFOC-20140411149

PATIENT
  Age: 60 Year
  Sex: Female
  Weight: 49.9 kg

DRUGS (2)
  1. TYLENOL EXTRA STRENGTH [Suspect]
     Indication: NEUROPATHY PERIPHERAL
     Route: 048
  2. SEIZURE MEDICATIONS [Concomitant]
     Indication: CONVULSION
     Route: 065

REACTIONS (5)
  - Liver injury [Not Recovered/Not Resolved]
  - Toxicity to various agents [Unknown]
  - Overdose [Unknown]
  - Vomiting [Unknown]
  - Drug ineffective [Unknown]
